FAERS Safety Report 6416636-2 (Version None)
Quarter: 2009Q4

REPORT INFORMATION
  Report Type: 
  Country: None (occurrence: None)
  Receive Date: 20091027
  Receipt Date: 20081229
  Transmission Date: 20100525
  Serious: No
  Sender: FDA-Public Use
  Company Number: US-ABBOTT-09P-163-0495513-00

PATIENT
  Sex: Male
  Weight: 68.1 kg

DRUGS (2)
  1. VICOPROFEN [Suspect]
     Indication: BACK PAIN
     Dosage: 7.5/200MG
     Route: 048
     Dates: start: 20050101
  2. XANAX [Concomitant]
     Indication: DRUG USE FOR UNKNOWN INDICATION
     Route: 048

REACTIONS (4)
  - BACK PAIN [None]
  - CERVICAL SPINAL STENOSIS [None]
  - OSTEOARTHRITIS [None]
  - SCOLIOSIS [None]
